FAERS Safety Report 7020988-2 (Version None)
Quarter: 2010Q3

REPORT INFORMATION
  Report Type: 
  Country: None (occurrence: None)
  Receive Date: 20100929
  Receipt Date: 20100917
  Transmission Date: 20110219
  Serious: Yes (Other)
  Sender: FDA-Public Use
  Company Number: VE-PFIZER INC-2010118784

PATIENT
  Age: 55 Year
  Sex: Female

DRUGS (3)
  1. ZOLOFT [Suspect]
     Indication: DEPRESSION
     Dosage: 50 MG, 1X/DAY
     Route: 048
     Dates: start: 20100907, end: 20100910
  2. ZOLOFT [Suspect]
     Indication: ANXIETY
  3. BROMAZEPAM [Concomitant]
     Indication: ANXIETY
     Dosage: 5 MG, 1X/DAY
     Route: 048
     Dates: start: 20100907, end: 20100910

REACTIONS (4)
  - DISORIENTATION [None]
  - HEADACHE [None]
  - HYPERHIDROSIS [None]
  - TACHYCARDIA [None]
